FAERS Safety Report 5878681-5 (Version None)
Quarter: 2008Q3

REPORT INFORMATION
  Report Type: 
  Country: None (occurrence: None)
  Receive Date: 20080912
  Receipt Date: 20080910
  Transmission Date: 20090109
  Serious: Yes (Death, Hospitalization)
  Sender: FDA-Public Use
  Company Number: DE-BAYER-200820316GPV

PATIENT
  Age: 46 Year
  Sex: Male
  Weight: 96 kg

DRUGS (1)
  1. SORAFENIB [Suspect]
     Indication: RENAL CELL CARCINOMA
     Dosage: TOTAL DAILY DOSE: 800 MG  UNIT DOSE: 200 MG
     Route: 048
     Dates: start: 20060903, end: 20061110

REACTIONS (3)
  - CACHEXIA [None]
  - LARGE INTESTINE PERFORATION [None]
  - NEOPLASM PROGRESSION [None]
